FAERS Safety Report 6700678-3 (Version None)
Quarter: 2010Q2

REPORT INFORMATION
  Report Type: 
  Country: None (occurrence: None)
  Receive Date: 20100428
  Receipt Date: 20100427
  Transmission Date: 20101027
  Serious: Yes (Life-Threatening, Other)
  Sender: FDA-Public Use
  Company Number: PHHY2010ES26594

PATIENT
  Age: 82 Year
  Sex: Female

DRUGS (4)
  1. VOLTAREN [Suspect]
     Indication: ATRIAL FIBRILLATION
     Dosage: 100 MG, UNK
     Route: 048
     Dates: start: 20090711, end: 20090801
  2. TRANGOREX [Suspect]
     Indication: ATRIAL FIBRILLATION
     Dosage: UNK
     Route: 048
     Dates: end: 20090801
  3. ALDOCUMAR [Suspect]
     Indication: ATRIAL FIBRILLATION
     Dosage: UNK
     Route: 048
  4. DIGOXIN [Concomitant]
     Indication: HYPERURICAEMIA
     Dosage: UNK
     Route: 048

REACTIONS (4)
  - DIVERTICULUM INTESTINAL [None]
  - GASTROINTESTINAL HAEMORRHAGE [None]
  - INTERNATIONAL NORMALISED RATIO INCREASED [None]
  - RECTAL HAEMORRHAGE [None]
